FAERS Safety Report 8136080-X (Version None)
Quarter: 2012Q1

REPORT INFORMATION
  Report Type: 
  Country: None (occurrence: None)
  Receive Date: 20120214
  Receipt Date: 20120203
  Transmission Date: 20120608
  Serious: Yes (Other)
  Sender: FDA-Public Use
  Company Number: US-JNJFOC-20120202765

PATIENT
  Sex: Female
  Weight: 77.11 kg

DRUGS (4)
  1. REMICADE [Suspect]
     Indication: COLITIS ULCERATIVE
     Dosage: SECOND INFUSION IN MAR-2011 (CONFLICTING INFORMATION)
     Route: 042
     Dates: start: 20110101, end: 20120101
  2. REMICADE [Suspect]
     Dosage: SECOND INFUSION IN MAR-2011 (CONFLICTING INFORMATION)
     Route: 042
     Dates: start: 20110101, end: 20120101
  3. REMICADE [Suspect]
     Route: 042
     Dates: start: 20110301
  4. REMICADE [Suspect]
     Indication: CROHN'S DISEASE
     Route: 042
     Dates: start: 20110301

REACTIONS (15)
  - MALAISE [None]
  - RASH PRURITIC [None]
  - GAIT DISTURBANCE [None]
  - FATIGUE [None]
  - UNEVALUABLE EVENT [None]
  - INTESTINAL PERFORATION [None]
  - ARTHRALGIA [None]
  - INTESTINAL OBSTRUCTION [None]
  - INFUSION RELATED REACTION [None]
  - HERPES VIRUS INFECTION [None]
  - DIZZINESS [None]
  - WRONG TECHNIQUE IN DRUG USAGE PROCESS [None]
  - DRUG LEVEL INCREASED [None]
  - HYPOAESTHESIA [None]
  - NEUROPATHY PERIPHERAL [None]
